FAERS Safety Report 21473681 (Version 1)
Quarter: 2022Q4

REPORT INFORMATION
  Report Type: Spontaneous
  Country: CA (occurrence: CA)
  Receive Date: 20221018
  Receipt Date: 20221018
  Transmission Date: 20230112
  Serious: Yes (Death)
  Sender: FDA-Public Use
  Company Number: CA-PFIZER INC-202201236812

PATIENT
  Age: 68 Year
  Sex: Female

DRUGS (2)
  1. RUXIENCE [Suspect]
     Active Substance: RITUXIMAB-PVVR
     Indication: Rheumatoid arthritis
     Dosage: 1000 MG, CYCLIC (ON DAY 1 AND DAY 15)
     Route: 042
     Dates: start: 20220321, end: 20220404
  2. RUXIENCE [Suspect]
     Active Substance: RITUXIMAB-PVVR
     Dosage: 1000 MG, CYCLIC (ON DAY 1 AND DAY 15)
     Route: 042
     Dates: start: 20220404, end: 20220404

REACTIONS (1)
  - Death [Fatal]
